FAERS Safety Report 25685292 (Version 1)
Quarter: 2025Q3

REPORT INFORMATION
  Report Type: Spontaneous
  Country: US (occurrence: US)
  Receive Date: 20250815
  Receipt Date: 20250815
  Transmission Date: 20251021
  Serious: No
  Sender: DR REDDYS
  Company Number: None

PATIENT
  Age: 7 Decade
  Sex: Female

DRUGS (12)
  1. MOXIFLOXACIN [Suspect]
     Active Substance: MOXIFLOXACIN
     Indication: Borderline leprosy
  2. MOXIFLOXACIN [Suspect]
     Active Substance: MOXIFLOXACIN
     Indication: Lepromatous leprosy
  3. METHOTREXATE [Concomitant]
     Active Substance: METHOTREXATE
     Indication: Borderline leprosy
     Dosage: DIVIDED IN DOSES 7.5 MG/DAY ON DAYS 1 AND 2
  4. METHOTREXATE [Concomitant]
     Active Substance: METHOTREXATE
     Indication: Lepromatous leprosy
  5. PREDNISONE [Concomitant]
     Active Substance: PREDNISONE
     Indication: Borderline leprosy
  6. PREDNISONE [Concomitant]
     Active Substance: PREDNISONE
     Indication: Lepromatous leprosy
  7. PREDNISONE [Concomitant]
     Active Substance: PREDNISONE
  8. PREDNISONE [Concomitant]
     Active Substance: PREDNISONE
  9. RIFAMPIN [Concomitant]
     Active Substance: RIFAMPIN
     Indication: Borderline leprosy
  10. RIFAMPIN [Concomitant]
     Active Substance: RIFAMPIN
     Indication: Lepromatous leprosy
  11. MINOCYCLINE [Concomitant]
     Active Substance: MINOCYCLINE HYDROCHLORIDE
     Indication: Borderline leprosy
  12. MINOCYCLINE [Concomitant]
     Active Substance: MINOCYCLINE HYDROCHLORIDE
     Indication: Lepromatous leprosy

REACTIONS (1)
  - Arthralgia [Unknown]
